FAERS Safety Report 12954926 (Version 2)
Quarter: 2016Q4

REPORT INFORMATION
  Report Type: Report from Study
  Country: NL (occurrence: NL)
  Receive Date: 20161118
  Receipt Date: 20161211
  Transmission Date: 20170207
  Serious: Yes (Life-Threatening, Hospitalization)
  Sender: FDA-Public Use
  Company Number: PHHY2016NL158216

PATIENT
  Age: 87 Year
  Sex: Female
  Weight: 72 kg

DRUGS (36)
  1. ACLASTA [Suspect]
     Active Substance: ZOLEDRONIC ACID
     Dosage: UNK
     Route: 065
     Dates: start: 20151005, end: 20151005
  2. COUMADIN [Concomitant]
     Active Substance: WARFARIN SODIUM
     Indication: HAEMORRHAGE
     Route: 065
  3. CIPROFLOXACINE [Concomitant]
     Active Substance: CIPROFLOXACIN
     Indication: HAEMORRHAGE
     Dosage: 2 DF, QD
     Route: 048
     Dates: start: 20160630
  4. BUMETANIDE. [Concomitant]
     Active Substance: BUMETANIDE
     Indication: PRODUCT USED FOR UNKNOWN INDICATION
     Dosage: 1 DF, QD
     Route: 048
     Dates: start: 20160803
  5. BUPRENORPHINE. [Concomitant]
     Active Substance: BUPRENORPHINE
     Dosage: 1 DF, QW (TUESDAY)
     Route: 062
     Dates: start: 20161104
  6. NORTRILEN [Concomitant]
     Active Substance: NORTRIPTYLINE
     Indication: PRODUCT USED FOR UNKNOWN INDICATION
     Dosage: 1 DF, QD
     Route: 048
     Dates: start: 20161117
  7. ACLASTA [Suspect]
     Active Substance: ZOLEDRONIC ACID
     Indication: OSTEOPOROSIS
     Dosage: 0.05 MG/ML (100 ML), Q12MO
     Route: 030
     Dates: start: 20130905
  8. HEPARIN [Concomitant]
     Active Substance: HEPARIN SODIUM
     Indication: HAEMORRHAGE
     Route: 065
  9. LANOXIN [Concomitant]
     Active Substance: DIGOXIN
     Dosage: 1 DF, QD (0.0625 MG)
     Route: 048
     Dates: start: 20161117
  10. RISPERIDONE. [Concomitant]
     Active Substance: RISPERIDONE
     Indication: PRODUCT USED FOR UNKNOWN INDICATION
     Dosage: 1 DF, QD
     Route: 048
     Dates: start: 20161117
  11. PANTOPRAZOL [Concomitant]
     Active Substance: PANTOPRAZOLE SODIUM
     Dosage: 1 DF, QD
     Route: 048
  12. ACENOCOUMAROL [Concomitant]
     Active Substance: ACENOCOUMAROL
     Indication: PRODUCT USED FOR UNKNOWN INDICATION
     Dosage: 1 MG, UNK (VOLGENE SCHEDULE TROMBOSEDLENST)
     Route: 048
     Dates: start: 20160613
  13. HYDROCHLOORTHIAZIDE [Concomitant]
     Active Substance: HYDROCHLOROTHIAZIDE
     Indication: PRODUCT USED FOR UNKNOWN INDICATION
     Dosage: 1 DF, QD
     Route: 048
     Dates: start: 20160919
  14. PARACETAMOL [Concomitant]
     Active Substance: ACETAMINOPHEN
     Indication: PRODUCT USED FOR UNKNOWN INDICATION
     Dosage: 2 DF, BID
     Route: 048
     Dates: start: 20161130
  15. D-CURE [Concomitant]
     Indication: PRODUCT USED FOR UNKNOWN INDICATION
     Dosage: 50000 U, UNK (FOUR WEEKS)
     Route: 065
  16. DURATEARS [Concomitant]
     Active Substance: MINERAL OIL EMULSION\PETROLATUM
     Indication: PRODUCT USED FOR UNKNOWN INDICATION
     Dosage: 4 DRP, QD
     Route: 047
     Dates: start: 20160915
  17. WARFARIN [Concomitant]
     Active Substance: WARFARIN
     Indication: THROMBOSIS
     Dosage: 1 MG, UNK
     Route: 065
     Dates: start: 20161125, end: 20161126
  18. HYDROCHLOORTHIAZIDE [Concomitant]
     Active Substance: HYDROCHLOROTHIAZIDE
     Dosage: 1 DF, QD
     Route: 048
     Dates: start: 20161117
  19. METOPROLOLSUCCINAAT [Concomitant]
     Active Substance: METOPROLOL SUCCINATE
     Indication: PRODUCT USED FOR UNKNOWN INDICATION
     Dosage: 1 DF, QD
     Route: 048
     Dates: start: 20161117
  20. DENOREX THERAPEUTIC [Concomitant]
     Active Substance: COAL TAR\MENTHOL
     Indication: PRODUCT USED FOR UNKNOWN INDICATION
     Dosage: 2 DF, QW
     Route: 065
     Dates: start: 20151005
  21. WARFARIN [Concomitant]
     Active Substance: WARFARIN
     Dosage: UNK
     Route: 065
     Dates: start: 20161128
  22. ACENOCOUMAROL [Concomitant]
     Active Substance: ACENOCOUMAROL
     Dosage: 1 MG, QD
     Route: 048
  23. MACROGOL [Concomitant]
     Active Substance: POLYETHYLENE GLYCOLS
     Indication: PRODUCT USED FOR UNKNOWN INDICATION
     Dosage: 2 DF, QD
     Route: 048
     Dates: start: 20150512, end: 20160622
  24. FUROSEMIDE. [Concomitant]
     Active Substance: FUROSEMIDE
     Indication: PRODUCT USED FOR UNKNOWN INDICATION
     Dosage: 1 DF, QD
     Route: 048
     Dates: start: 20160602, end: 20160622
  25. PANTOPRAZOL [Concomitant]
     Active Substance: PANTOPRAZOLE SODIUM
     Indication: PRODUCT USED FOR UNKNOWN INDICATION
     Dosage: 1 DF, QD
     Route: 048
     Dates: start: 20161125
  26. LANOXIN [Concomitant]
     Active Substance: DIGOXIN
     Indication: PRODUCT USED FOR UNKNOWN INDICATION
     Dosage: 1 DF, QD (0.125 MG)
     Route: 048
     Dates: start: 20151229, end: 20160107
  27. BUMETANIDE. [Concomitant]
     Active Substance: BUMETANIDE
     Dosage: 1 DF, QD
     Route: 048
     Dates: start: 20160929
  28. BUMETANIDE. [Concomitant]
     Active Substance: BUMETANIDE
     Dosage: 1 DF, QD
     Route: 048
     Dates: start: 20161117
  29. CETOMACROGOL [Concomitant]
     Active Substance: COSMETICS
     Indication: PRODUCT USED FOR UNKNOWN INDICATION
     Dosage: 1 DF, TID
     Route: 065
     Dates: start: 20160803, end: 20161111
  30. KLYX [Concomitant]
     Active Substance: DOCUSATE SODIUM
     Indication: PRODUCT USED FOR UNKNOWN INDICATION
     Dosage: 1 DF, BID
     Route: 054
     Dates: start: 20161110
  31. BUMETANIDE. [Concomitant]
     Active Substance: BUMETANIDE
     Dosage: 1 DF, QD
     Route: 048
     Dates: start: 20160912
  32. BUMETANIDE. [Concomitant]
     Active Substance: BUMETANIDE
     Dosage: 1 DF, QD
     Route: 048
     Dates: start: 20160919
  33. BUPRENORPHINE. [Concomitant]
     Active Substance: BUPRENORPHINE
     Indication: PRODUCT USED FOR UNKNOWN INDICATION
     Dosage: 1 DF, QW
     Route: 062
     Dates: start: 20161004
  34. PARACETAMOL [Concomitant]
     Active Substance: ACETAMINOPHEN
     Dosage: 2 DF, BID (IF NECESSARY)
     Route: 048
     Dates: start: 20161125, end: 20161201
  35. LOPROX [Concomitant]
     Active Substance: CICLOPIROX\CICLOPIROX OLAMINE
     Indication: PRODUCT USED FOR UNKNOWN INDICATION
     Dosage: UNK UNK, BID
     Route: 065
     Dates: start: 20160630, end: 20160730
  36. WARFARIN [Concomitant]
     Active Substance: WARFARIN
     Dosage: 2 MG, UNK
     Route: 065
     Dates: start: 20161127

REACTIONS (31)
  - Gastric ulcer haemorrhage [Recovering/Resolving]
  - Rectal haemorrhage [Unknown]
  - Nausea [Unknown]
  - Angiodysplasia [Unknown]
  - White blood cell count increased [Unknown]
  - Faeces discoloured [Unknown]
  - Haemodynamic instability [Unknown]
  - Hypotension [Recovering/Resolving]
  - Chills [Unknown]
  - Emotional disorder [Unknown]
  - Blood urea increased [Unknown]
  - Anaemia [Unknown]
  - Abdominal pain [Unknown]
  - Dizziness [Recovering/Resolving]
  - Urinary tract infection [Unknown]
  - Escherichia test positive [Unknown]
  - Fall [Unknown]
  - Blood glucose increased [Unknown]
  - Circulatory collapse [Recovering/Resolving]
  - Phlebitis [Unknown]
  - Tachycardia [Unknown]
  - Osteoarthritis [Unknown]
  - Nitrite urine present [Unknown]
  - C-reactive protein increased [Unknown]
  - Melaena [Unknown]
  - Cardiomegaly [Unknown]
  - Blood creatinine increased [Unknown]
  - Glomerular filtration rate decreased [Unknown]
  - Pyrexia [Recovered/Resolved]
  - Blood urine present [Unknown]
  - Incorrect route of drug administration [Unknown]

NARRATIVE: CASE EVENT DATE: 20161113
